FAERS Safety Report 8109966-X (Version None)
Quarter: 2012Q1

REPORT INFORMATION
  Report Type: 
  Country: None (occurrence: None)
  Receive Date: 20120202
  Receipt Date: 20120123
  Transmission Date: 20120608
  Serious: No
  Sender: FDA-Public Use
  Company Number: US-AMGEN-USASP2012004671

PATIENT
  Age: 55 Year
  Sex: Male

DRUGS (2)
  1. ENBREL [Suspect]
     Indication: PSORIATIC ARTHROPATHY
     Dosage: 50 MG, QWK
     Dates: start: 20110601, end: 20120114
  2. TREXALL [Concomitant]
     Dosage: 5 MG, QWK
     Dates: start: 20090101

REACTIONS (3)
  - COUGH [None]
  - DYSPHONIA [None]
  - NASAL CONGESTION [None]
